FAERS Safety Report 24665882 (Version 2)
Quarter: 2025Q4

REPORT INFORMATION
  Report Type: Spontaneous
  Country: US (occurrence: US)
  Receive Date: 20241126
  Receipt Date: 20251109
  Transmission Date: 20260118
  Serious: No
  Sender: LUNDBECK
  Company Number: US-LUNDBECK-DKLU4006985

PATIENT
  Age: 44 Year
  Sex: Female

DRUGS (2)
  1. VYEPTI [Suspect]
     Active Substance: EPTINEZUMAB-JJMR
     Indication: Product used for unknown indication
     Dosage: 300 MILLIGRAM
     Route: 041
  2. VYEPTI [Suspect]
     Active Substance: EPTINEZUMAB-JJMR
     Dosage: 100 MILLIGRAM
     Route: 041
     Dates: end: 202508

REACTIONS (1)
  - Drug ineffective [Unknown]

NARRATIVE: CASE EVENT DATE: 20240101
